FAERS Safety Report 7041028-5 (Version None)
Quarter: 2010Q4

REPORT INFORMATION
  Report Type: 
  Country: None (occurrence: None)
  Receive Date: 20101013
  Receipt Date: 20101006
  Transmission Date: 20110411
  Serious: Yes (Hospitalization)
  Sender: FDA-Public Use
  Company Number: FR-WYE-G06773210

PATIENT
  Sex: Male

DRUGS (2)
  1. REFACTO [Suspect]
     Indication: FACTOR VIII DEFICIENCY
     Dosage: 1000 IU
     Route: 042
     Dates: start: 20100602, end: 20100602
  2. FACTANE [Suspect]
     Indication: POST PROCEDURAL HAEMORRHAGE
     Dosage: 6000 IU DAILY
     Route: 042
     Dates: start: 20100602, end: 20100607

REACTIONS (1)
  - FACTOR VIII INHIBITION [None]
